FAERS Safety Report 24113865 (Version 1)
Quarter: 2024Q3

REPORT INFORMATION
  Report Type: Spontaneous
  Country: GB (occurrence: GB)
  Receive Date: 20240720
  Receipt Date: 20240720
  Transmission Date: 20241016
  Serious: Yes (Other)
  Sender: ABBVIE
  Company Number: None

PATIENT
  Age: 63 Year
  Sex: Female

DRUGS (1)
  1. ATOGEPANT [Suspect]
     Active Substance: ATOGEPANT
     Indication: Adverse drug reaction
     Dosage: 60 MG
     Route: 048
     Dates: start: 20240219

REACTIONS (5)
  - Ischaemic stroke [Recovering/Resolving]
  - Asthenia [Recovering/Resolving]
  - Coordination abnormal [Recovering/Resolving]
  - Dizziness [Recovering/Resolving]
  - Facial paralysis [Recovering/Resolving]

NARRATIVE: CASE EVENT DATE: 20240101
